FAERS Safety Report 14540354 (Version 2)
Quarter: 2018Q2

REPORT INFORMATION
  Report Type: Spontaneous
  Country: IT (occurrence: IT)
  Receive Date: 20180216
  Receipt Date: 20180416
  Transmission Date: 20180711
  Serious: Yes (Hospitalization)
  Sender: FDA-Public Use
  Company Number: IT-PFIZER INC-2018064178

PATIENT
  Age: 57 Year
  Sex: Female

DRUGS (3)
  1. LIVIAL [Concomitant]
     Active Substance: TIBOLONE
     Dosage: UNK
  2. DIFMETRE [Suspect]
     Active Substance: CAFFEINE\INDOMETHACIN\PROCHLORPERAZINE MALEATE
     Indication: HEADACHE
     Dosage: 20 DF, 1X/DAY
     Route: 048
     Dates: start: 20171101, end: 20180122
  3. RELPAX [Suspect]
     Active Substance: ELETRIPTAN HYDROBROMIDE
     Indication: HEADACHE
     Dosage: 1 DF, 1X/DAY
     Route: 048
     Dates: start: 20171101, end: 20180122

REACTIONS (3)
  - Drug abuse [Recovering/Resolving]
  - Headache [Recovering/Resolving]
  - Hypertension [Recovering/Resolving]

NARRATIVE: CASE EVENT DATE: 20180122
